FAERS Safety Report 9471554 (Version 2)
Quarter: 2015Q2

REPORT INFORMATION
  Report Type: Spontaneous
  Country: US (occurrence: US)
  Receive Date: 20130822
  Receipt Date: 20150504
  Transmission Date: 20150821
  Serious: Yes (Death, Hospitalization)
  Sender: FDA-Public Use
  Company Number: PHHY2013US090425

PATIENT
  Age: 82 Year
  Sex: Male

DRUGS (2)
  1. METHOTREXATE [Suspect]
     Active Substance: METHOTREXATE
     Indication: LYMPHOCYTIC LEUKAEMIA
  2. METHOTREXATE [Suspect]
     Active Substance: METHOTREXATE
     Indication: RHEUMATOID ARTHRITIS
     Dosage: 12 MG, PER WEEK
     Route: 048

REACTIONS (13)
  - Concomitant disease progression [Fatal]
  - Prostate cancer metastatic [Fatal]
  - Blood immunoglobulin G decreased [Fatal]
  - Back pain [Fatal]
  - Muscular weakness [Fatal]
  - Dyspnoea [Unknown]
  - Prostatic specific antigen increased [Fatal]
  - Respiratory failure [Fatal]
  - Acute kidney injury [Unknown]
  - Prostate cancer [Fatal]
  - Hypotension [Unknown]
  - Metastases to bone [Fatal]
  - Lethargy [Unknown]
